FAERS Safety Report 5076346-3 (Version None)
Quarter: 2006Q3

REPORT INFORMATION
  Report Type: 
  Country: None (occurrence: None)
  Receive Date: 20060807
  Receipt Date: 20060726
  Transmission Date: 20061208
  Serious: Yes (Hospitalization, Other)
  Sender: FDA-Public Use
  Company Number: HQWYE390626JUL06

PATIENT
  Age: 77 Year
  Sex: Male

DRUGS (5)
  1. INIPOMP           (PANTOPRAZOLE DELAYED  RELEASE) [Suspect]
     Dosage: DF, ORAL
     Route: 048
     Dates: start: 20060426, end: 20060621
  2. ALDACTONE [Suspect]
     Dosage: DF, ORAL
     Route: 048
     Dates: end: 20060621
  3. ORACILLIN                   (PHENOXYMETHYLPENICILLIN POTASSIUM, ) [Suspect]
     Dosage: DF, ORAL
     Route: 048
     Dates: start: 20060207, end: 20060621
  4. PLAVIX [Suspect]
     Dosage: MG, ORAL
     Route: 048
     Dates: start: 20060426, end: 20060621
  5. CLONAZEPAM [Suspect]
     Dosage: DF, ORAL
     Route: 048
     Dates: start: 20060207, end: 20060621

REACTIONS (2)
  - AGRANULOCYTOSIS [None]
  - AMPUTATION [None]
